FAERS Safety Report 8304298-9 (Version None)
Quarter: 2012Q2

REPORT INFORMATION
  Report Type: 
  Country: None (occurrence: None)
  Receive Date: 20120423
  Receipt Date: 20120423
  Transmission Date: 20120825
  Serious: Yes (Death)
  Sender: FDA-Public Use
  Company Number: None

PATIENT
  Age: 21 Year
  Sex: Male
  Weight: 65.77 kg

DRUGS (2)
  1. METHADONE HCL [Suspect]
     Indication: PAIN
     Dosage: 80MGS
     Route: 048
     Dates: start: 20120204, end: 20120206
  2. METHADONE HCL [Suspect]
     Indication: SELF-MEDICATION
     Dosage: 80MGS
     Route: 048
     Dates: start: 20120204, end: 20120206

REACTIONS (11)
  - LOSS OF CONSCIOUSNESS [None]
  - LETHARGY [None]
  - DYSGRAPHIA [None]
  - COMPLETED SUICIDE [None]
  - OVERDOSE [None]
  - RETCHING [None]
  - SELF-MEDICATION [None]
  - DYSSTASIA [None]
  - PALLOR [None]
  - DYSARTHRIA [None]
  - VOMITING [None]
